FAERS Safety Report 6101992-5 (Version None)
Quarter: 2009Q1

REPORT INFORMATION
  Report Type: 
  Country: None (occurrence: None)
  Receive Date: 20090303
  Receipt Date: 20090303
  Transmission Date: 20090719
  Serious: No
  Sender: FDA-Public Use
  Company Number: None

PATIENT
  Age: 35 Year
  Sex: Female
  Weight: 71.2147 kg

DRUGS (1)
  1. YAZ [Suspect]
     Indication: CONTRACEPTION
     Dosage: 1 QD PO
     Route: 048
     Dates: start: 20080525, end: 20090124

REACTIONS (4)
  - HYPERCHOLESTEROLAEMIA [None]
  - IRRITABLE BOWEL SYNDROME [None]
  - LYMPH NODE PAIN [None]
  - WEIGHT INCREASED [None]
